FAERS Safety Report 22394475 (Version 2)
Quarter: 2023Q2

REPORT INFORMATION
  Report Type: Report from Study
  Country: FR (occurrence: FR)
  Receive Date: 20230601
  Receipt Date: 20230607
  Transmission Date: 20230722
  Serious: Yes (Life-Threatening, Hospitalization, Other)
  Sender: FDA-Public Use
  Company Number: None

PATIENT
  Age: 68 Year
  Sex: Male

DRUGS (1)
  1. ENFORTUMAB VEDOTIN [Suspect]
     Active Substance: ENFORTUMAB VEDOTIN
     Indication: Bladder cancer
     Route: 042
     Dates: start: 20230303, end: 20230412

REACTIONS (6)
  - Stevens-Johnson syndrome [Recovering/Resolving]
  - Acute kidney injury [Recovering/Resolving]
  - Dermatitis bullous [Recovering/Resolving]
  - Lymphopenia [Unknown]
  - Hepatic enzyme increased [Recovering/Resolving]
  - Anaemia [Not Recovered/Not Resolved]

NARRATIVE: CASE EVENT DATE: 20230330
